FAERS Safety Report 26191786 (Version 1)
Quarter: 2025Q4

REPORT INFORMATION
  Report Type: Spontaneous
  Country: GB (occurrence: GB)
  Receive Date: 20251223
  Receipt Date: 20251223
  Transmission Date: 20260117
  Serious: Yes (Other)
  Sender: MYLAN
  Company Number: None

PATIENT
  Age: 81 Year
  Sex: Male
  Weight: 80 kg

DRUGS (56)
  1. DOXAZOSIN [Suspect]
     Active Substance: DOXAZOSIN MESYLATE
     Indication: Ill-defined disorder
     Dosage: 2 MILLIGRAM, QD
     Dates: start: 20250829, end: 20251111
  2. DOXAZOSIN [Suspect]
     Active Substance: DOXAZOSIN MESYLATE
     Dosage: 2 MILLIGRAM, QD
     Route: 065
     Dates: start: 20250829, end: 20251111
  3. DOXAZOSIN [Suspect]
     Active Substance: DOXAZOSIN MESYLATE
     Dosage: 2 MILLIGRAM, QD
     Route: 065
     Dates: start: 20250829, end: 20251111
  4. DOXAZOSIN [Suspect]
     Active Substance: DOXAZOSIN MESYLATE
     Dosage: 2 MILLIGRAM, QD
     Dates: start: 20250829, end: 20251111
  5. BISOPROLOL [Concomitant]
     Active Substance: BISOPROLOL
     Indication: Ill-defined disorder
     Dosage: 1 DOSAGE FORM, QD (TAKE ONE TABLET DAILY)
     Dates: start: 20251201
  6. BISOPROLOL [Concomitant]
     Active Substance: BISOPROLOL
     Dosage: 1 DOSAGE FORM, QD (TAKE ONE TABLET DAILY)
     Route: 065
     Dates: start: 20251201
  7. BISOPROLOL [Concomitant]
     Active Substance: BISOPROLOL
     Dosage: 1 DOSAGE FORM, QD (TAKE ONE TABLET DAILY)
     Route: 065
     Dates: start: 20251201
  8. BISOPROLOL [Concomitant]
     Active Substance: BISOPROLOL
     Dosage: 1 DOSAGE FORM, QD (TAKE ONE TABLET DAILY)
     Dates: start: 20251201
  9. ATORVASTATIN [Concomitant]
     Active Substance: ATORVASTATIN
     Indication: Ill-defined disorder
     Dosage: 1 DOSAGE FORM, PM (TAKE ONE DAILY IN THE EVENING TO LOWER CHOLESTEROL)
     Dates: start: 20250727
  10. ATORVASTATIN [Concomitant]
     Active Substance: ATORVASTATIN
     Dosage: 1 DOSAGE FORM, PM (TAKE ONE DAILY IN THE EVENING TO LOWER CHOLESTEROL)
     Route: 065
     Dates: start: 20250727
  11. ATORVASTATIN [Concomitant]
     Active Substance: ATORVASTATIN
     Dosage: 1 DOSAGE FORM, PM (TAKE ONE DAILY IN THE EVENING TO LOWER CHOLESTEROL)
     Route: 065
     Dates: start: 20250727
  12. ATORVASTATIN [Concomitant]
     Active Substance: ATORVASTATIN
     Dosage: 1 DOSAGE FORM, PM (TAKE ONE DAILY IN THE EVENING TO LOWER CHOLESTEROL)
     Dates: start: 20250727
  13. ISOSORBIDE MONONITRATE [Concomitant]
     Active Substance: ISOSORBIDE MONONITRATE
     Indication: Ill-defined disorder
     Dosage: 0.5 DOSAGE FORM, AM (TAKE HALF A TABLET ONCE IN THE MORNING)
     Dates: start: 20250727
  14. ISOSORBIDE MONONITRATE [Concomitant]
     Active Substance: ISOSORBIDE MONONITRATE
     Dosage: 0.5 DOSAGE FORM, AM (TAKE HALF A TABLET ONCE IN THE MORNING)
     Route: 065
     Dates: start: 20250727
  15. ISOSORBIDE MONONITRATE [Concomitant]
     Active Substance: ISOSORBIDE MONONITRATE
     Dosage: 0.5 DOSAGE FORM, AM (TAKE HALF A TABLET ONCE IN THE MORNING)
     Route: 065
     Dates: start: 20250727
  16. ISOSORBIDE MONONITRATE [Concomitant]
     Active Substance: ISOSORBIDE MONONITRATE
     Dosage: 0.5 DOSAGE FORM, AM (TAKE HALF A TABLET ONCE IN THE MORNING)
     Dates: start: 20250727
  17. CLOPIDOGREL [Concomitant]
     Active Substance: CLOPIDOGREL BISULFATE
     Indication: Ill-defined disorder
     Dosage: 1 DOSAGE FORM, QD (TAKE ONE TABLET ONCE DAILY)
     Dates: start: 20250727
  18. CLOPIDOGREL [Concomitant]
     Active Substance: CLOPIDOGREL BISULFATE
     Dosage: 1 DOSAGE FORM, QD (TAKE ONE TABLET ONCE DAILY)
     Route: 065
     Dates: start: 20250727
  19. CLOPIDOGREL [Concomitant]
     Active Substance: CLOPIDOGREL BISULFATE
     Dosage: 1 DOSAGE FORM, QD (TAKE ONE TABLET ONCE DAILY)
     Route: 065
     Dates: start: 20250727
  20. CLOPIDOGREL [Concomitant]
     Active Substance: CLOPIDOGREL BISULFATE
     Dosage: 1 DOSAGE FORM, QD (TAKE ONE TABLET ONCE DAILY)
     Dates: start: 20250727
  21. EDOXABAN [Concomitant]
     Active Substance: EDOXABAN
     Indication: Ill-defined disorder
     Dosage: 1 DOSAGE FORM, QD (TAKE ONE DAILY)
     Dates: start: 20250727
  22. EDOXABAN [Concomitant]
     Active Substance: EDOXABAN
     Dosage: 1 DOSAGE FORM, QD (TAKE ONE DAILY)
     Route: 065
     Dates: start: 20250727
  23. EDOXABAN [Concomitant]
     Active Substance: EDOXABAN
     Dosage: 1 DOSAGE FORM, QD (TAKE ONE DAILY)
     Route: 065
     Dates: start: 20250727
  24. EDOXABAN [Concomitant]
     Active Substance: EDOXABAN
     Dosage: 1 DOSAGE FORM, QD (TAKE ONE DAILY)
     Dates: start: 20250727
  25. NITROGLYCERIN [Concomitant]
     Active Substance: NITROGLYCERIN
     Indication: Ill-defined disorder
     Dosage: UNK (SPRAY 1-2 DOSES UNDER TONGUE AS NEEDED, THEN CL...)
  26. NITROGLYCERIN [Concomitant]
     Active Substance: NITROGLYCERIN
     Dosage: UNK (SPRAY 1-2 DOSES UNDER TONGUE AS NEEDED, THEN CL...)
     Route: 065
  27. NITROGLYCERIN [Concomitant]
     Active Substance: NITROGLYCERIN
     Dosage: UNK (SPRAY 1-2 DOSES UNDER TONGUE AS NEEDED, THEN CL...)
     Route: 065
  28. NITROGLYCERIN [Concomitant]
     Active Substance: NITROGLYCERIN
     Dosage: UNK (SPRAY 1-2 DOSES UNDER TONGUE AS NEEDED, THEN CL...)
  29. LANSOPRAZOLE [Concomitant]
     Active Substance: LANSOPRAZOLE
     Indication: Ill-defined disorder
     Dosage: 1 DOSAGE FORM, QD (TAKE ONE ONCE DAILY, TO TAKE 4 HOURS APART FROM...)
     Dates: start: 20250727
  30. LANSOPRAZOLE [Concomitant]
     Active Substance: LANSOPRAZOLE
     Dosage: 1 DOSAGE FORM, QD (TAKE ONE ONCE DAILY, TO TAKE 4 HOURS APART FROM...)
     Route: 065
     Dates: start: 20250727
  31. LANSOPRAZOLE [Concomitant]
     Active Substance: LANSOPRAZOLE
     Dosage: 1 DOSAGE FORM, QD (TAKE ONE ONCE DAILY, TO TAKE 4 HOURS APART FROM...)
     Route: 065
     Dates: start: 20250727
  32. LANSOPRAZOLE [Concomitant]
     Active Substance: LANSOPRAZOLE
     Dosage: 1 DOSAGE FORM, QD (TAKE ONE ONCE DAILY, TO TAKE 4 HOURS APART FROM...)
     Dates: start: 20250727
  33. LERCANIDIPINE HYDROCHLORIDE [Concomitant]
     Active Substance: LERCANIDIPINE HYDROCHLORIDE
     Indication: Ill-defined disorder
     Dosage: 1 DOSAGE FORM, QD (TAKE ONE TABLET DAILY BEFORE FOOD)
     Dates: start: 20250727
  34. LERCANIDIPINE HYDROCHLORIDE [Concomitant]
     Active Substance: LERCANIDIPINE HYDROCHLORIDE
     Dosage: 1 DOSAGE FORM, QD (TAKE ONE TABLET DAILY BEFORE FOOD)
     Route: 065
     Dates: start: 20250727
  35. LERCANIDIPINE HYDROCHLORIDE [Concomitant]
     Active Substance: LERCANIDIPINE HYDROCHLORIDE
     Dosage: 1 DOSAGE FORM, QD (TAKE ONE TABLET DAILY BEFORE FOOD)
     Route: 065
     Dates: start: 20250727
  36. LERCANIDIPINE HYDROCHLORIDE [Concomitant]
     Active Substance: LERCANIDIPINE HYDROCHLORIDE
     Dosage: 1 DOSAGE FORM, QD (TAKE ONE TABLET DAILY BEFORE FOOD)
     Dates: start: 20250727
  37. LEVOTHYROXINE [Concomitant]
     Active Substance: LEVOTHYROXINE
     Indication: Ill-defined disorder
     Dosage: 1 DOSAGE FORM, AM (TAKE ONE EACH MORNING)
     Dates: start: 20250727
  38. LEVOTHYROXINE [Concomitant]
     Active Substance: LEVOTHYROXINE
     Dosage: 1 DOSAGE FORM, AM (TAKE ONE EACH MORNING)
     Route: 065
     Dates: start: 20250727
  39. LEVOTHYROXINE [Concomitant]
     Active Substance: LEVOTHYROXINE
     Dosage: 1 DOSAGE FORM, AM (TAKE ONE EACH MORNING)
     Route: 065
     Dates: start: 20250727
  40. LEVOTHYROXINE [Concomitant]
     Active Substance: LEVOTHYROXINE
     Dosage: 1 DOSAGE FORM, AM (TAKE ONE EACH MORNING)
     Dates: start: 20250727
  41. LOSARTAN [Concomitant]
     Active Substance: LOSARTAN
     Indication: Ill-defined disorder
     Dosage: 1 DOSAGE FORM, PM (TAKE ONE DAILY IN THE EVENING)
     Dates: start: 20250727
  42. LOSARTAN [Concomitant]
     Active Substance: LOSARTAN
     Dosage: 1 DOSAGE FORM, PM (TAKE ONE DAILY IN THE EVENING)
     Route: 065
     Dates: start: 20250727
  43. LOSARTAN [Concomitant]
     Active Substance: LOSARTAN
     Dosage: 1 DOSAGE FORM, PM (TAKE ONE DAILY IN THE EVENING)
     Route: 065
     Dates: start: 20250727
  44. LOSARTAN [Concomitant]
     Active Substance: LOSARTAN
     Dosage: 1 DOSAGE FORM, PM (TAKE ONE DAILY IN THE EVENING)
     Dates: start: 20250727
  45. RANOLAZINE [Concomitant]
     Active Substance: RANOLAZINE
     Indication: Ill-defined disorder
     Dosage: 1 DOSAGE FORM, BID (TAKE ONE TWICE DAILY)
     Dates: start: 20250727
  46. RANOLAZINE [Concomitant]
     Active Substance: RANOLAZINE
     Dosage: 1 DOSAGE FORM, BID (TAKE ONE TWICE DAILY)
     Route: 065
     Dates: start: 20250727
  47. RANOLAZINE [Concomitant]
     Active Substance: RANOLAZINE
     Dosage: 1 DOSAGE FORM, BID (TAKE ONE TWICE DAILY)
     Route: 065
     Dates: start: 20250727
  48. RANOLAZINE [Concomitant]
     Active Substance: RANOLAZINE
     Dosage: 1 DOSAGE FORM, BID (TAKE ONE TWICE DAILY)
     Dates: start: 20250727
  49. DUTASTERIDE [Concomitant]
     Active Substance: DUTASTERIDE
     Indication: Ill-defined disorder
     Dosage: 1 DOSAGE FORM, QD (TAKE ONE DAILY)
     Dates: start: 20250727
  50. DUTASTERIDE [Concomitant]
     Active Substance: DUTASTERIDE
     Dosage: 1 DOSAGE FORM, QD (TAKE ONE DAILY)
     Route: 065
     Dates: start: 20250727
  51. DUTASTERIDE [Concomitant]
     Active Substance: DUTASTERIDE
     Dosage: 1 DOSAGE FORM, QD (TAKE ONE DAILY)
     Route: 065
     Dates: start: 20250727
  52. DUTASTERIDE [Concomitant]
     Active Substance: DUTASTERIDE
     Dosage: 1 DOSAGE FORM, QD (TAKE ONE DAILY)
     Dates: start: 20250727
  53. INDAPAMIDE [Concomitant]
     Active Substance: INDAPAMIDE
     Indication: Ill-defined disorder
     Dosage: 1 DOSAGE FORM, AM (TAKE ONE EACH MORNING)
     Dates: start: 20251201
  54. INDAPAMIDE [Concomitant]
     Active Substance: INDAPAMIDE
     Dosage: 1 DOSAGE FORM, AM (TAKE ONE EACH MORNING)
     Route: 065
     Dates: start: 20251201
  55. INDAPAMIDE [Concomitant]
     Active Substance: INDAPAMIDE
     Dosage: 1 DOSAGE FORM, AM (TAKE ONE EACH MORNING)
     Route: 065
     Dates: start: 20251201
  56. INDAPAMIDE [Concomitant]
     Active Substance: INDAPAMIDE
     Dosage: 1 DOSAGE FORM, AM (TAKE ONE EACH MORNING)
     Dates: start: 20251201

REACTIONS (1)
  - Confusional state [Recovered/Resolved]
